FAERS Safety Report 5366666-7 (Version None)
Quarter: 2007Q2

REPORT INFORMATION
  Report Type: 
  Country: None (occurrence: None)
  Receive Date: 20070619
  Receipt Date: 20070608
  Transmission Date: 20071010
  Serious: Yes (Hospitalization)
  Sender: FDA-Public Use
  Company Number: 234728K07USA

PATIENT
  Age: 51 Year
  Sex: Female
  Weight: 38.5557 kg

DRUGS (6)
  1. REBIF [Suspect]
     Indication: MULTIPLE SCLEROSIS
     Dosage: 44 MCG, 3 IN 1 WEEKS, SUBCUTANEOUS
     Route: 058
     Dates: start: 20021120
  2. HYDROCODONE (HYDROCODONE) [Concomitant]
  3. MAXALT (RITAZTRIPTAN) [Concomitant]
  4. TOPAMAX [Concomitant]
  5. NORTRIPTYLINE (NORTRIPTYLINE /00006501/) [Concomitant]
  6. XANAX [Concomitant]

REACTIONS (12)
  - FOOT FRACTURE [None]
  - INJECTION SITE PAIN [None]
  - INSOMNIA [None]
  - METRORRHAGIA [None]
  - MUSCLE SPASMS [None]
  - NAUSEA [None]
  - PAIN IN EXTREMITY [None]
  - VAGINAL DISCHARGE [None]
  - VAGINAL DISORDER [None]
  - VOMITING [None]
  - WEIGHT DECREASED [None]
  - WHITE BLOOD CELL COUNT DECREASED [None]
